FAERS Safety Report 7784056-4 (Version None)
Quarter: 2011Q3

REPORT INFORMATION
  Report Type: 
  Country: None (occurrence: None)
  Receive Date: 20110926
  Receipt Date: 20110908
  Transmission Date: 20111222
  Serious: Yes (Other)
  Sender: FDA-Public Use
  Company Number: 1000023900

PATIENT
  Age: 72 Year
  Sex: Female

DRUGS (7)
  1. LACIPIL (LACIDIPINE) (LACIDIPINE) [Concomitant]
  2. LEVOTHYROXINE SODIUM [Concomitant]
  3. ESCITALOPRAM [Suspect]
     Indication: DEPRESSION
     Dosage: 10 MG (10 MG, 1 IN 1 D), ORAL
     Route: 048
     Dates: end: 20110101
  4. ESCITALOPRAM [Suspect]
     Indication: DEPRESSION
     Dosage: 5 MG (5 MG, 1 IN 1 D), ORAL
     Route: 048
     Dates: start: 20110101
  5. ACETYLSALICYLIC ACID SRT [Suspect]
     Dosage: 100 MG (100 MG, 1 IN 1 D), ORAL
     Route: 048
  6. RIVOTRIL (CLONAZEPAM) (CLONAZEPAM) [Concomitant]
  7. LOSARTIC (LOSARTAN POTASSIUM) (LOSARTAN POTASSIUM) [Concomitant]

REACTIONS (3)
  - HAEMORRHAGE [None]
  - DRUG INTERACTION [None]
  - ECCHYMOSIS [None]
